FAERS Safety Report 14368344 (Version 2)
Quarter: 2018Q1

REPORT INFORMATION
  Report Type: Spontaneous
  Country: US (occurrence: US)
  Receive Date: 20180109
  Receipt Date: 20180201
  Transmission Date: 20180509
  Serious: Yes (Hospitalization, Other)
  Sender: FDA-Public Use
  Company Number: US-PFIZER INC-2018006444

PATIENT
  Age: 87 Year
  Sex: Female

DRUGS (1)
  1. ADVIL PM [Suspect]
     Active Substance: DIPHENHYDRAMINE CITRATE\IBUPROFEN
     Indication: INSOMNIA
     Dosage: UNK
     Dates: end: 20180104

REACTIONS (6)
  - Intentional product misuse [Recovered/Resolved]
  - Foreign body in respiratory tract [Recovered/Resolved]
  - Choking [Recovered/Resolved]
  - Fear [Unknown]
  - Product physical issue [Recovered/Resolved]
  - Cough [Recovered/Resolved]
